FAERS Safety Report 10470765 (Version 1)
Quarter: 2014Q3

REPORT INFORMATION
  Report Type: Spontaneous
  Country: US (occurrence: None)
  Receive Date: 20140917
  Receipt Date: 20140917
  Transmission Date: 20150326
  Serious: No
  Sender: FDA-Public Use
  Company Number: 2014CT000083

PATIENT
  Age: 45 Year
  Sex: Female
  Weight: 91.63 kg

DRUGS (5)
  1. ATORVASTATIN [Concomitant]
     Active Substance: ATORVASTATIN
  2. LISINOPRIL. [Concomitant]
     Active Substance: LISINOPRIL
  3. METFORMIN [Concomitant]
     Active Substance: METFORMIN HYDROCHLORIDE
  4. KORLYM [Suspect]
     Active Substance: MIFEPRISTONE
     Indication: CUSHING^S SYNDROME
     Dates: start: 201406
  5. GLYBURIDE. [Concomitant]
     Active Substance: GLYBURIDE

REACTIONS (7)
  - Vomiting [None]
  - Decreased appetite [None]
  - Nausea [None]
  - Abdominal pain upper [None]
  - Insomnia [None]
  - Fatigue [None]
  - Apathy [None]

NARRATIVE: CASE EVENT DATE: 201406
